FAERS Safety Report 7761396-6 (Version None)
Quarter: 2011Q3

REPORT INFORMATION
  Report Type: 
  Country: None (occurrence: None)
  Receive Date: 20110920
  Receipt Date: 20110916
  Transmission Date: 20111222
  Serious: No
  Sender: FDA-Public Use
  Company Number: US-PFIZER INC-2011220449

PATIENT
  Sex: Female
  Weight: 49.433 kg

DRUGS (1)
  1. ADVIL LIQUI-GELS [Suspect]
     Indication: HEADACHE
     Dosage: 200 MG, 2X/DAY
     Route: 048

REACTIONS (2)
  - HORMONE LEVEL ABNORMAL [None]
  - SLEEP DISORDER [None]
